FAERS Safety Report 17298371 (Version 2)
Quarter: 2020Q1

REPORT INFORMATION
  Report Type: Report from Study
  Country: CA (occurrence: CA)
  Receive Date: 20200121
  Receipt Date: 20200210
  Transmission Date: 20200409
  Serious: Yes (Death)
  Sender: FDA-Public Use
  Company Number: CA-ACTELION-A-US2019-192556

PATIENT
  Age: 4 Year
  Sex: Female

DRUGS (9)
  1. SILDENAFIL. [Concomitant]
     Active Substance: SILDENAFIL
     Dosage: 10 MG Q8 HRS
     Route: 048
     Dates: start: 20190819
  2. SENNOSIDES A+B [Concomitant]
     Active Substance: SENNOSIDES A AND B
     Dosage: 5.1 MG QHS
     Dates: start: 20190819
  3. FUROSEMIDE. [Concomitant]
     Active Substance: FUROSEMIDE
  4. FERROUS FUMARATE [Concomitant]
     Active Substance: FERROUS FUMARATE
     Dosage: 25 MG, BID
     Dates: start: 20190820
  5. POLYETHYLENE GLYCOL 3350. [Concomitant]
     Active Substance: POLYETHYLENE GLYCOL 3350
     Dosage: 1 PACKAGE, BID
     Route: 048
     Dates: start: 20190819
  6. TRACLEER [Suspect]
     Active Substance: BOSENTAN
     Indication: PULMONARY ARTERIAL HYPERTENSION
     Dosage: 31.25 MG, QD
     Route: 048
     Dates: start: 20190503, end: 20191226
  7. AMOXICILLIN. [Concomitant]
     Active Substance: AMOXICILLIN
     Dosage: 125 MG Q12 HRS
     Dates: start: 20190819
  8. POTASSIUM CHLORIDE. [Concomitant]
     Active Substance: POTASSIUM CHLORIDE
  9. ALDACTAZIDE [Concomitant]
     Active Substance: HYDROCHLOROTHIAZIDE\SPIRONOLACTONE
     Dosage: 13.5 MG, BID
     Dates: start: 20190820

REACTIONS (9)
  - Apnoea [Fatal]
  - Pulmonary hypertension [Fatal]
  - Disease progression [Fatal]
  - Cyanosis [Fatal]
  - Tachycardia [Fatal]
  - No adverse event [Unknown]
  - Pulmonary hypertensive crisis [Fatal]
  - Hypoperfusion [Fatal]
  - Product use issue [Unknown]

NARRATIVE: CASE EVENT DATE: 20191226
